FAERS Safety Report 6079733-X (Version None)
Quarter: 2009Q1

REPORT INFORMATION
  Report Type: 
  Country: None (occurrence: None)
  Receive Date: 20090211
  Receipt Date: 20090206
  Transmission Date: 20090719
  Serious: Yes (Death, Hospitalization)
  Sender: FDA-Public Use
  Company Number: 2009-00485

PATIENT
  Age: 74 Year
  Sex: Male

DRUGS (6)
  1. VELCADE [Suspect]
     Indication: MANTLE CELL LYMPHOMA
     Dosage: 2 MG/M2, UNK, INTRAVENOUS
     Route: 042
     Dates: start: 20080822, end: 20081031
  2. MABTHERA(RITUXIMAB) INJECTION [Suspect]
     Indication: MANTLE CELL LYMPHOMA
     Dosage: 750 MG/M2, UNK, INTRAVENOUS
     Route: 042
     Dates: start: 20080829, end: 20081031
  3. NEUPOGEN [Suspect]
     Indication: MANTLE CELL LYMPHOMA
     Dosage: 300 UG, UNK, UNK
     Dates: start: 20080829, end: 20080903
  4. CHLORAMBUCIL(CHLORAMBUCIL) OR [Suspect]
     Indication: MANTLE CELL LYMPHOMA
     Dosage: 12 MG, UNK, UNK
     Dates: start: 20080910, end: 20081031
  5. DEXAMETHASONE TAB [Suspect]
     Indication: MANTLE CELL LYMPHOMA
     Dates: end: 20081031
  6. DOXORUBICIN HCL [Suspect]
     Indication: MANTLE CELL LYMPHOMA
     Dosage: 18 MG, UNK, INTRAVENOUS
     Route: 042
     Dates: end: 20081031

REACTIONS (2)
  - ASTHENIA [None]
  - DISEASE PROGRESSION [None]
